FAERS Safety Report 5576267-3 (Version None)
Quarter: 2007Q4

REPORT INFORMATION
  Report Type: 
  Country: None (occurrence: None)
  Receive Date: 20071228
  Receipt Date: 20071220
  Transmission Date: 20080405
  Serious: Yes (Disabling, Other)
  Sender: FDA-Public Use
  Company Number: US-ROCHE-473693

PATIENT
  Age: 20 Year
  Sex: Male
  Weight: 80.3 kg

DRUGS (6)
  1. ACCUTANE [Suspect]
     Dosage: STRENGTH AND FORMULATION AND DOSAGE REGIMEN REPORTED AS 40 MG/20MG.
     Route: 048
     Dates: start: 20021018, end: 20030511
  2. CLEOCIN HYDROCHLORIDE [Concomitant]
     Indication: ACNE
  3. PRAMOSONE [Concomitant]
     Indication: ACNE
  4. ELIDEL [Concomitant]
     Indication: ACNE
  5. TRIMPEX [Concomitant]
     Indication: ACNE
  6. PREDNISONE [Concomitant]
     Indication: ACNE

REACTIONS (11)
  - ABDOMINAL PAIN [None]
  - ANAEMIA [None]
  - COLITIS [None]
  - COLITIS ULCERATIVE [None]
  - CROHN'S DISEASE [None]
  - HYDRONEPHROSIS [None]
  - INFLAMMATORY BOWEL DISEASE [None]
  - INTESTINAL HAEMORRHAGE [None]
  - RECTAL HAEMORRHAGE [None]
  - RENAL CYST [None]
  - WEIGHT DECREASED [None]
